FAERS Safety Report 5925528-4 (Version None)
Quarter: 2008Q4

REPORT INFORMATION
  Report Type: 
  Country: None (occurrence: None)
  Receive Date: 20081021
  Receipt Date: 20081014
  Transmission Date: 20090506
  Serious: Yes (Hospitalization)
  Sender: FDA-Public Use
  Company Number: PHHY2008GB25062

PATIENT
  Sex: Male

DRUGS (3)
  1. CLOZARIL [Suspect]
     Indication: SCHIZOPHRENIA
     Dosage: UNK
     Dates: start: 20040810
  2. CLOZARIL [Suspect]
     Dosage: 12 TABLETS
  3. CLOZARIL [Suspect]
     Dosage: 2 TABLETS
     Dates: start: 20081013

REACTIONS (1)
  - INTENTIONAL OVERDOSE [None]
